FAERS Safety Report 11269628 (Version 1)
Quarter: 2015Q3

REPORT INFORMATION
  Report Type: Spontaneous
  Country: US (occurrence: None)
  Receive Date: 20150713
  Receipt Date: 20150713
  Transmission Date: 20151125
  Serious: Yes (Death, Hospitalization)
  Sender: FDA-Public Use
  Company Number: None

PATIENT
  Age: 63 Year
  Sex: Female
  Weight: 63.5 kg

DRUGS (2)
  1. AFINITOR [Suspect]
     Active Substance: EVEROLIMUS
     Indication: METASTASES TO BONE
  2. AFINITOR [Suspect]
     Active Substance: EVEROLIMUS
     Indication: BREAST CANCER METASTATIC

REACTIONS (8)
  - Epistaxis [None]
  - Joint swelling [None]
  - Pneumonia [None]
  - Weight decreased [None]
  - Peripheral swelling [None]
  - Gastrointestinal haemorrhage [None]
  - Gingival bleeding [None]
  - Respiratory failure [None]

NARRATIVE: CASE EVENT DATE: 20150704
